FAERS Safety Report 4862463-7 (Version None)
Quarter: 2005Q4

REPORT INFORMATION
  Report Type: 
  Country: None (occurrence: None)
  Receive Date: 20051221
  Receipt Date: 20051209
  Transmission Date: 20060501
  Serious: Yes (Other)
  Sender: FDA-Public Use
  Company Number: CA-BRISTOL-MYERS SQUIBB COMPANY-13217104

PATIENT
  Age: 73 Year
  Sex: Female

DRUGS (12)
  1. TEQUIN [Suspect]
     Route: 048
  2. DIABETA [Suspect]
     Route: 048
  3. COMBIVENT [Concomitant]
  4. COZAAR [Concomitant]
  5. DIAMOX [Concomitant]
     Route: 048
  6. ENTROPHEN [Concomitant]
     Route: 048
  7. LASIX [Concomitant]
     Route: 048
  8. MAXERAN [Concomitant]
     Route: 048
  9. PULMICORT [Concomitant]
  10. ZANTAC [Concomitant]
  11. OXEZE [Concomitant]
  12. TEAR-GEL [Concomitant]

REACTIONS (2)
  - DIZZINESS [None]
  - HYPOGLYCAEMIA [None]
